FAERS Safety Report 9482416 (Version 1)
Quarter: 2013Q3

REPORT INFORMATION
  Report Type: Spontaneous
  Country: FR (occurrence: FR)
  Receive Date: 20130828
  Receipt Date: 20130828
  Transmission Date: 20140515
  Serious: Yes (Death)
  Sender: FDA-Public Use
  Company Number: FR-PFIZER INC-2013246598

PATIENT
  Age: 43 Year
  Sex: 0

DRUGS (4)
  1. ARTOTEC [Suspect]
     Indication: ARTHRALGIA
     Dosage: 0.2 MG/50 MG
     Route: 048
     Dates: end: 20130810
  2. ARTOTEC [Suspect]
     Indication: OSTEOARTHRITIS
  3. SELOKEN [Concomitant]
     Dosage: 200 MG, 1X/DAY
     Route: 048
     Dates: end: 20130811
  4. MICARDIS [Concomitant]
     Dosage: 80 MG, 1X/DAY
     Route: 048
     Dates: end: 20130811

REACTIONS (2)
  - Pancreatitis acute [Fatal]
  - Renal failure acute [Fatal]
